FAERS Safety Report 25231578 (Version 5)
Quarter: 2025Q3

REPORT INFORMATION
  Report Type: Report from Study
  Country: KR (occurrence: KR)
  Receive Date: 20250423
  Receipt Date: 20250712
  Transmission Date: 20251020
  Serious: Yes (Death, Hospitalization, Other)
  Sender: TAKEDA
  Company Number: KR-TAKEDA-2025TUS037975

PATIENT
  Age: 65 Year
  Sex: Male
  Weight: 48.1 kg

DRUGS (51)
  1. MARIBAVIR [Suspect]
     Active Substance: MARIBAVIR
     Indication: Cytomegalovirus infection
     Dosage: 400 MILLIGRAM, BID
     Dates: start: 20250225, end: 20250303
  2. MARIBAVIR [Suspect]
     Active Substance: MARIBAVIR
     Dosage: 400 MILLIGRAM, BID
     Dates: start: 20250325, end: 20250413
  3. AMLODIPINE OROTATE [Concomitant]
     Active Substance: AMLODIPINE OROTATE
     Indication: Hypertension
     Dosage: 5 MILLIGRAM, QD
     Dates: start: 20250307, end: 20250307
  4. AMLODIPINE OROTATE [Concomitant]
     Active Substance: AMLODIPINE OROTATE
     Dosage: 5 MILLIGRAM, QD
     Dates: start: 20250320, end: 20250320
  5. AMLODIPINE OROTATE [Concomitant]
     Active Substance: AMLODIPINE OROTATE
     Dosage: 5 MILLIGRAM, QD
     Dates: start: 20250407, end: 20250408
  6. GATIFLOXACIN [Concomitant]
     Active Substance: GATIFLOXACIN
     Indication: Graft versus host disease in eye
     Dosage: UNK UNK, TID
     Dates: start: 20250114, end: 20250410
  7. Predbell [Concomitant]
     Indication: Graft versus host disease in eye
     Dosage: UNK UNK, QID
     Dates: start: 20250114, end: 20250410
  8. OCUFLOX [Concomitant]
     Active Substance: OFLOXACIN
     Indication: Graft versus host disease in eye
     Dosage: UNK UNK, TID
     Dates: start: 20250114, end: 20250410
  9. Hepa merz [Concomitant]
     Indication: Graft versus host disease in liver
     Dosage: 2000 MILLIGRAM, QD
     Dates: start: 20250109, end: 20250412
  10. Hepa merz [Concomitant]
     Dosage: 20 GRAM, QD
     Dates: start: 20250413, end: 20250413
  11. PANTOPRAZOLE SODIUM [Concomitant]
     Active Substance: PANTOPRAZOLE SODIUM
     Indication: Gastrointestinal disorder prophylaxis
     Dosage: 40 MILLIGRAM, QD
     Dates: start: 20250109, end: 20250413
  12. MEROPENEM [Concomitant]
     Active Substance: MEROPENEM
     Indication: Bacteraemia
     Dosage: 1 GRAM, TID
     Dates: start: 20250320, end: 20250404
  13. CEFTAZIDIME [Concomitant]
     Active Substance: CEFTAZIDIME
     Indication: Sepsis
     Dosage: 2 GRAM, TID
     Dates: start: 20250225, end: 20250307
  14. CEFTAZIDIME [Concomitant]
     Active Substance: CEFTAZIDIME
     Indication: Bacteraemia
     Dosage: 2 GRAM, TID
     Dates: start: 20250405, end: 20250413
  15. TRANEXAMIC ACID [Concomitant]
     Active Substance: TRANEXAMIC ACID
     Indication: Haematochezia
     Dosage: 2500 MILLIGRAM, QD
     Dates: start: 20250110, end: 20250412
  16. Zoylex [Concomitant]
     Indication: Infection prophylaxis
     Dosage: 250 MILLIGRAM, BID
     Dates: start: 20250225, end: 20250303
  17. RUXOLITINIB [Concomitant]
     Active Substance: RUXOLITINIB
     Indication: Acute myeloid leukaemia
     Dosage: 10 MILLIGRAM, BID
     Dates: start: 20250123, end: 20250306
  18. DIFLUCAN [Concomitant]
     Active Substance: FLUCONAZOLE
     Indication: Infection prophylaxis
     Dosage: 400 MILLIGRAM, QD
     Dates: start: 20250211, end: 20250314
  19. NEUPOGEN [Concomitant]
     Active Substance: FILGRASTIM
     Indication: Prophylaxis
     Dosage: 300 MICROGRAM, QD
     Dates: start: 20250327, end: 20250327
  20. FILGRASTIM [Concomitant]
     Active Substance: FILGRASTIM
     Indication: Prophylaxis
     Dosage: 300 MICROGRAM, QD
     Dates: start: 20250217, end: 20250217
  21. FILGRASTIM [Concomitant]
     Active Substance: FILGRASTIM
     Dosage: 300 MICROGRAM, QD
     Dates: start: 20250303, end: 20250303
  22. Gavir [Concomitant]
     Dosage: 270 MILLIGRAM, QD
     Dates: start: 20250312, end: 20250322
  23. FOSCAVIR [Concomitant]
     Active Substance: FOSCARNET SODIUM
     Dosage: 4500 MILLIGRAM, QD
     Dates: start: 20250323, end: 20250324
  24. METHYLPREDNISOLONE [Concomitant]
     Active Substance: METHYLPREDNISOLONE
     Indication: Graft versus host disease in gastrointestinal tract
     Dosage: 60 MILLIGRAM, QD
     Dates: start: 20250122, end: 20250130
  25. METHYLPREDNISOLONE [Concomitant]
     Active Substance: METHYLPREDNISOLONE
     Dosage: 25 MILLIGRAM, QD
     Dates: start: 20250211, end: 20250303
  26. METHYLPREDNISOLONE [Concomitant]
     Active Substance: METHYLPREDNISOLONE
     Dosage: 12.5 MILLIGRAM, QD
     Dates: start: 20250217, end: 20250303
  27. METHYLPREDNISOLONE [Concomitant]
     Active Substance: METHYLPREDNISOLONE
     Dosage: 10 MILLIGRAM, BID
     Dates: start: 20250304, end: 20250309
  28. TACROLIMUS [Concomitant]
     Active Substance: TACROLIMUS
     Indication: Prophylaxis against graft versus host disease
     Dosage: 0.2 MILLIGRAM, QD
     Dates: start: 20250110, end: 20250312
  29. TACROLIMUS [Concomitant]
     Active Substance: TACROLIMUS
     Indication: Graft versus host disease in gastrointestinal tract
     Dosage: 0.2 MILLIGRAM, QD
     Dates: start: 20250117, end: 20250117
  30. TACROLIMUS [Concomitant]
     Active Substance: TACROLIMUS
     Dosage: 0.25 MILLIGRAM, QD
     Dates: start: 20250128, end: 20250131
  31. TACROLIMUS [Concomitant]
     Active Substance: TACROLIMUS
     Dosage: 0.15 MILLIGRAM, QD
     Dates: start: 20250201, end: 20250203
  32. TACROLIMUS [Concomitant]
     Active Substance: TACROLIMUS
     Dosage: 0.15 MILLIGRAM, QD
     Dates: start: 20250204, end: 20250206
  33. TACROLIMUS [Concomitant]
     Active Substance: TACROLIMUS
     Dosage: 0.1 MILLIGRAM, QD
     Dates: start: 20250207, end: 20250213
  34. TACROLIMUS [Concomitant]
     Active Substance: TACROLIMUS
     Dosage: 0.07 MILLIGRAM, QD
     Dates: start: 20250214, end: 20250216
  35. TACROLIMUS [Concomitant]
     Active Substance: TACROLIMUS
     Dosage: 0.08 MILLIGRAM, QD
     Dates: start: 20250217, end: 20250217
  36. TACROLIMUS [Concomitant]
     Active Substance: TACROLIMUS
     Dosage: 0.1 MILLIGRAM, QD
     Dates: start: 20250218, end: 20250220
  37. TACROLIMUS [Concomitant]
     Active Substance: TACROLIMUS
     Dosage: 0.15 MILLIGRAM, QD
     Dates: start: 20250221, end: 20250224
  38. TACROLIMUS [Concomitant]
     Active Substance: TACROLIMUS
     Dosage: 0.2 MILLIGRAM, QD
     Dates: start: 20250225, end: 20250304
  39. TACROLIMUS [Concomitant]
     Active Substance: TACROLIMUS
     Dosage: 0.25 MILLIGRAM, QD
     Dates: start: 20250305, end: 20250311
  40. LENOGRASTIM [Concomitant]
     Active Substance: LENOGRASTIM
     Indication: Prophylaxis
     Dosage: 150 MICROGRAM, QD
     Dates: start: 20250308, end: 20250308
  41. Hyabak [Concomitant]
     Indication: Graft versus host disease in eye
  42. LEVOFLOXACIN [Concomitant]
     Active Substance: LEVOFLOXACIN
     Indication: Graft versus host disease in eye
     Dosage: UNK UNK, QID
     Dates: start: 20250219, end: 20250320
  43. PROBENECID [Concomitant]
     Active Substance: PROBENECID
     Indication: Prophylaxis
     Dosage: 1000 MILLIGRAM, QID
     Dates: start: 20250304, end: 20250304
  44. SULFAMETHOXAZOLE\TRIMETHOPRIM [Concomitant]
     Active Substance: SULFAMETHOXAZOLE\TRIMETHOPRIM
     Indication: Infection prophylaxis
     Dosage: 400 MILLIGRAM, QD
     Dates: start: 20240805, end: 20250321
  45. ZYVOX [Concomitant]
     Active Substance: LINEZOLID
     Indication: Bacteraemia
     Dosage: 600 MILLIGRAM, BID
     Dates: start: 20250225, end: 20250413
  46. Tazoperan [Concomitant]
     Indication: Bacteraemia
     Dosage: 4.5 GRAM, QID
     Dates: start: 20250307, end: 20250319
  47. Freepan [Concomitant]
     Indication: Gastrointestinal haemorrhage
     Dosage: 20 MILLIGRAM, TID
     Dates: start: 20250217, end: 20250307
  48. ACETYLCYSTEINE [Concomitant]
     Active Substance: ACETYLCYSTEINE
     Indication: Pneumonia
     Dosage: 600 MILLIGRAM, TID
     Dates: start: 20250228
  49. LOPERAMIDE [Concomitant]
     Active Substance: LOPERAMIDE
     Indication: Graft versus host disease in gastrointestinal tract
     Dosage: 4 MILLIGRAM, TID
     Dates: start: 20250114, end: 20250206
  50. Sk albumin [Concomitant]
     Indication: Hypoalbuminaemia
     Dates: start: 20250225, end: 20250407
  51. NEXIUM [Concomitant]
     Active Substance: ESOMEPRAZOLE MAGNESIUM
     Indication: Graft versus host disease in gastrointestinal tract
     Dosage: 80 MILLIGRAM, TID
     Dates: start: 20250308, end: 20250316

REACTIONS (6)
  - Multiple organ dysfunction syndrome [Fatal]
  - Intestinal perforation [Not Recovered/Not Resolved]
  - Respiratory failure [Not Recovered/Not Resolved]
  - Bronchopulmonary aspergillosis [Not Recovered/Not Resolved]
  - Cystitis haemorrhagic [Not Recovered/Not Resolved]
  - Peritonitis [Not Recovered/Not Resolved]

NARRATIVE: CASE EVENT DATE: 20250304
